FAERS Safety Report 5905319-0 (Version None)
Quarter: 2008Q4

REPORT INFORMATION
  Report Type: 
  Country: None (occurrence: None)
  Receive Date: 20081001
  Receipt Date: 20080916
  Transmission Date: 20090506
  Serious: Yes (Disabling)
  Sender: FDA-Public Use
  Company Number: AU-PFIZER INC-2008061241

PATIENT
  Age: 47 Year
  Sex: Female

DRUGS (1)
  1. CHANTIX [Suspect]
     Indication: SMOKING CESSATION THERAPY
     Route: 048
     Dates: start: 20080703, end: 20080715

REACTIONS (5)
  - DEPRESSED MOOD [None]
  - DYSGEUSIA [None]
  - EMOTIONAL DISORDER [None]
  - IRRITABILITY [None]
  - TEARFULNESS [None]
